FAERS Safety Report 6977804-4 (Version None)
Quarter: 2010Q3

REPORT INFORMATION
  Report Type: 
  Country: None (occurrence: None)
  Receive Date: 20100913
  Receipt Date: 20100902
  Transmission Date: 20110219
  Serious: No
  Sender: FDA-Public Use
  Company Number: US-BIOGENIDEC-2010BI031167

PATIENT
  Age: 37 Year
  Sex: Female

DRUGS (2)
  1. TYSABRI [Suspect]
     Indication: MULTIPLE SCLEROSIS
     Route: 042
     Dates: start: 20091204, end: 20100430
  2. BENADRYL [Concomitant]
     Indication: PREMEDICATION
     Dates: start: 20100108

REACTIONS (3)
  - HEPATIC ENZYME INCREASED [None]
  - INFUSION RELATED REACTION [None]
  - SOMNOLENCE [None]
